FAERS Safety Report 8600421-7 (Version None)
Quarter: 2012Q3

REPORT INFORMATION
  Report Type: 
  Country: None (occurrence: None)
  Receive Date: 20120802
  Receipt Date: 20120718
  Transmission Date: 20120928
  Serious: Yes (Hospitalization)
  Sender: FDA-Public Use
  Company Number: TPA2012A05104

PATIENT
  Age: 90 Year
  Sex: Female

DRUGS (2)
  1. ADENURIC(FEBUXOSTAT) [Suspect]
     Indication: HYPERURICAEMIA
     Dosage: 90 MG (60 MG, 1 IN 1 D) ORAL
     Route: 048
  2. PREDNISONE [Concomitant]

REACTIONS (2)
  - ERYTHEMA [None]
  - SKIN REACTION [None]
